FAERS Safety Report 17469279 (Version 2)
Quarter: 2020Q1

REPORT INFORMATION
  Report Type: Spontaneous
  Country: US (occurrence: US)
  Receive Date: 20200227
  Receipt Date: 20200325
  Transmission Date: 20200409
  Serious: No
  Sender: FDA-Public Use
  Company Number: US-LEXICON PHARMACEUTICALS, INC-20-1606-00149

PATIENT
  Age: 65 Year
  Sex: Male

DRUGS (1)
  1. XERMELO [Suspect]
     Active Substance: TELOTRISTAT ETHYL
     Indication: CARCINOID SYNDROME
     Dates: start: 20191223

REACTIONS (7)
  - Peripheral swelling [Not Recovered/Not Resolved]
  - Flushing [Unknown]
  - Product dose omission [Unknown]
  - Disorientation [Unknown]
  - Memory impairment [Unknown]
  - Confusional state [Unknown]
  - Blood pressure increased [Unknown]
